FAERS Safety Report 7886367-0 (Version None)
Quarter: 2011Q4

REPORT INFORMATION
  Report Type: 
  Country: None (occurrence: None)
  Receive Date: 20111102
  Receipt Date: 20110701
  Transmission Date: 20120403
  Serious: No
  Sender: FDA-Public Use
  Company Number: US-AMGEN-USASP2011033751

PATIENT
  Age: 43 Year
  Sex: Female

DRUGS (1)
  1. ENBREL [Suspect]
     Indication: RHEUMATOID ARTHRITIS
     Dates: start: 20100901, end: 20110401

REACTIONS (8)
  - INCREASED UPPER AIRWAY SECRETION [None]
  - HEADACHE [None]
  - SINUSITIS [None]
  - ARTHRALGIA [None]
  - BACK PAIN [None]
  - PYREXIA [None]
  - NECK PAIN [None]
  - INJECTION SITE PAIN [None]
